FAERS Safety Report 10071974 (Version 1)
Quarter: 2014Q1

REPORT INFORMATION
  Report Type: Spontaneous
  Country: US (occurrence: None)
  Receive Date: 20140312
  Receipt Date: 20140312
  Transmission Date: 20141002
  Serious: Yes (Other)
  Sender: FDA-Public Use
  Company Number: 2014SA016244

PATIENT
  Sex: Female

DRUGS (2)
  1. AUBAGIO [Suspect]
     Indication: MULTIPLE SCLEROSIS
     Route: 048
     Dates: start: 20140109
  2. AUBAGIO [Suspect]
     Route: 048
     Dates: start: 20140109

REACTIONS (8)
  - Convulsion [None]
  - Alopecia [None]
  - Depression [None]
  - Pain [None]
  - Multiple injuries [None]
  - Nausea [None]
  - Headache [None]
  - Hypophagia [None]
